FAERS Safety Report 16739398 (Version 3)
Quarter: 2019Q3

REPORT INFORMATION
  Report Type: Report from Study
  Country: US (occurrence: US)
  Receive Date: 20190826
  Receipt Date: 20190918
  Transmission Date: 20191005
  Serious: Yes (Hospitalization, Other)
  Sender: FDA-Public Use
  Company Number: US-BRISTOL-MYERS SQUIBB COMPANY-BMS-2019-081758

PATIENT
  Age: 78 Year
  Sex: Female
  Weight: 46.5 kg

DRUGS (2)
  1. NIVOLUMAB [Suspect]
     Active Substance: NIVOLUMAB
     Indication: SALIVARY GLAND CANCER
     Dosage: 480 MILLIGRAM, Q6WK
     Route: 042
     Dates: start: 20181114, end: 20190612
  2. IPILIMUMAB [Suspect]
     Active Substance: IPILIMUMAB
     Indication: SALIVARY GLAND CANCER
     Dosage: 1 MILLIGRAM/KILOGRAM, Q4WK
     Route: 042
     Dates: start: 20181114, end: 20190710

REACTIONS (5)
  - Failure to thrive [Unknown]
  - Cellulitis [Recovered/Resolved]
  - Decreased appetite [Recovered/Resolved with Sequelae]
  - Weight decreased [Unknown]
  - Clostridium difficile colitis [Unknown]

NARRATIVE: CASE EVENT DATE: 20190815
